FAERS Safety Report 8026592-1 (Version None)
Quarter: 2012Q1

REPORT INFORMATION
  Report Type: 
  Country: None (occurrence: None)
  Receive Date: 20120106
  Receipt Date: 20090526
  Transmission Date: 20120608
  Serious: No
  Sender: FDA-Public Use
  Company Number: US-BIOGENIDEC-2009BI016312

PATIENT
  Age: 64 Year
  Sex: Male

DRUGS (3)
  1. TYSABRI [Suspect]
     Route: 042
  2. TYSABRI [Suspect]
     Indication: MULTIPLE SCLEROSIS
     Route: 042
     Dates: start: 20090414
  3. OVER THE COUNTER MEDICATION (NOS) [Concomitant]
     Indication: URINARY TRACT DISORDER

REACTIONS (9)
  - ARTHRITIS [None]
  - PAIN IN EXTREMITY [None]
  - MUSCULAR WEAKNESS [None]
  - MUSCLE SPASTICITY [None]
  - GAIT DISTURBANCE [None]
  - SOMNOLENCE [None]
  - URINARY TRACT INFECTION [None]
  - MYALGIA [None]
  - FATIGUE [None]
